FAERS Safety Report 7884003-0 (Version None)
Quarter: 2011Q4

REPORT INFORMATION
  Report Type: 
  Country: None (occurrence: None)
  Receive Date: 20111102
  Receipt Date: 20111021
  Transmission Date: 20120403
  Serious: Yes (Other)
  Sender: FDA-Public Use
  Company Number: PHHY2011BR93557

PATIENT
  Sex: Female

DRUGS (1)
  1. FORMOTEROL FUMARATE [Suspect]
     Indication: DYSPNOEA
     Dosage: 2 INHALATIONS A DAY (IN THE MORNING AND AT NIGHT)

REACTIONS (2)
  - RESPIRATORY DISORDER [None]
  - VIRAL INFECTION [None]
